FAERS Safety Report 4597479-1 (Version None)
Quarter: 2005Q1

REPORT INFORMATION
  Report Type: 
  Country: None (occurrence: None)
  Receive Date: 20050303
  Receipt Date: 20050223
  Transmission Date: 20050727
  Serious: Yes (Life-Threatening, Hospitalization)
  Sender: FDA-Public Use
  Company Number: NO-MERCK-0503NOR00002

PATIENT
  Age: 49 Year
  Sex: Male

DRUGS (5)
  1. DIAZEPAM [Concomitant]
     Route: 048
  2. ZOPICLONE [Concomitant]
     Route: 048
  3. TRAMADOL HYDROCHLORIDE [Concomitant]
     Route: 048
  4. VIOXX [Suspect]
     Indication: ARTHRALGIA
     Route: 048
     Dates: start: 20030312, end: 20040901
  5. ACETAMINOPHEN [Concomitant]
     Route: 048

REACTIONS (2)
  - ANGINA UNSTABLE [None]
  - MYOCARDIAL INFARCTION [None]
